FAERS Safety Report 8496760-3 (Version None)
Quarter: 2012Q3

REPORT INFORMATION
  Report Type: 
  Country: None (occurrence: None)
  Receive Date: 20120709
  Receipt Date: 20090225
  Transmission Date: 20120928
  Serious: Yes (Hospitalization)
  Sender: FDA-Public Use
  Company Number: TR-ROCHE-1084813

PATIENT
  Sex: Female

DRUGS (1)
  1. XOLAIR [Suspect]
     Indication: ASTHMA
     Route: 058
     Dates: start: 20090216

REACTIONS (4)
  - GENERAL PHYSICAL HEALTH DETERIORATION [None]
  - WHEEZING [None]
  - COUGH [None]
  - ASTHMA [None]
